FAERS Safety Report 5570086-X (Version None)
Quarter: 2007Q4

REPORT INFORMATION
  Report Type: 
  Country: None (occurrence: None)
  Receive Date: 20071218
  Receipt Date: 20071203
  Transmission Date: 20080405
  Serious: Yes (Death, Other)
  Sender: FDA-Public Use
  Company Number: 2007P1000709

PATIENT
  Age: 58 Year
  Sex: Female

DRUGS (2)
  1. BUSULFAN (BUSULFAN) [Suspect]
     Indication: STEM CELL TRANSPLANT
     Dosage: 24.4 ML;QD;IV 18.3 ML;QD;IV
     Route: 042
     Dates: start: 20070315, end: 20070316
  2. BUSULFAN (BUSULFAN) [Suspect]
     Indication: STEM CELL TRANSPLANT
     Dosage: 24.4 ML;QD;IV 18.3 ML;QD;IV
     Route: 042
     Dates: start: 20070317, end: 20070317

REACTIONS (9)
  - ANOREXIA [None]
  - ASPERGILLOSIS [None]
  - DIARRHOEA [None]
  - GASTROINTESTINAL HAEMORRHAGE [None]
  - INFECTION [None]
  - MALAISE [None]
  - NAUSEA [None]
  - STOMATITIS [None]
  - VOMITING [None]
